FAERS Safety Report 10223601 (Version 1)
Quarter: 2014Q2

REPORT INFORMATION
  Report Type: Report from Study
  Country: DK (occurrence: DK)
  Receive Date: 20140609
  Receipt Date: 20140609
  Transmission Date: 20141212
  Serious: Yes (Hospitalization, Other)
  Sender: FDA-Public Use
  Company Number: DK-UCBSA-2014000202

PATIENT
  Sex: 0

DRUGS (1)
  1. CERTOLIZUMAB PEGOL [Suspect]
     Dosage: UNKNOWN DOSE

REACTIONS (2)
  - Lymphadenopathy [Unknown]
  - Tuberculosis [Not Recovered/Not Resolved]
